FAERS Safety Report 6268996-3 (Version None)
Quarter: 2009Q3

REPORT INFORMATION
  Report Type: 
  Country: None (occurrence: None)
  Receive Date: 20090715
  Receipt Date: 20090706
  Transmission Date: 20100115
  Serious: Yes (Disabling)
  Sender: FDA-Public Use
  Company Number: A0793090A

PATIENT
  Age: 65 Year
  Sex: Female

DRUGS (2)
  1. ADVAIR HFA [Suspect]
     Indication: CHRONIC OBSTRUCTIVE PULMONARY DISEASE
     Dosage: 1PUFF TWICE PER DAY
     Route: 055
     Dates: start: 20060401
  2. ZYRTEC [Concomitant]

REACTIONS (11)
  - ABNORMAL DREAMS [None]
  - COUGH [None]
  - DRUG INEFFECTIVE [None]
  - INCREASED VISCOSITY OF BRONCHIAL SECRETION [None]
  - MIDDLE INSOMNIA [None]
  - OXYGEN SATURATION DECREASED [None]
  - PRODUCT QUALITY ISSUE [None]
  - PRODUCT TASTE ABNORMAL [None]
  - PRODUCTIVE COUGH [None]
  - RESTLESSNESS [None]
  - VISUAL IMPAIRMENT [None]
